FAERS Safety Report 10525639 (Version 4)
Quarter: 2015Q1

REPORT INFORMATION
  Report Type: Spontaneous
  Country: US (occurrence: US)
  Receive Date: 20141017
  Receipt Date: 20150224
  Transmission Date: 20150720
  Serious: No
  Sender: FDA-Public Use
  Company Number: US-PFIZER INC-2014284865

PATIENT
  Age: 55 Year
  Sex: Female
  Weight: 51 kg

DRUGS (1)
  1. NICOTROL [Suspect]
     Active Substance: NICOTINE
     Dosage: 2 PUFFS OF INHALER; UNK
     Dates: start: 20141014

REACTIONS (4)
  - Glossodynia [Recovering/Resolving]
  - Oral discomfort [Recovering/Resolving]
  - Product quality issue [Recovering/Resolving]
  - Malaise [Unknown]

NARRATIVE: CASE EVENT DATE: 2014
